FAERS Safety Report 8617853-3 (Version None)
Quarter: 2012Q3

REPORT INFORMATION
  Report Type: 
  Country: None (occurrence: None)
  Receive Date: 20120824
  Receipt Date: 20120302
  Transmission Date: 20120928
  Serious: No
  Sender: FDA-Public Use
  Company Number: US-ASTRAZENECA-2012SE15003

PATIENT
  Age: 28257 Day
  Sex: Female
  Weight: 58.1 kg

DRUGS (4)
  1. SYMBICORT [Suspect]
     Indication: CHRONIC OBSTRUCTIVE PULMONARY DISEASE
     Dosage: 160/4.5 MICROGRAMS, TWO PUFFS TWICE DAILY.
     Route: 055
  2. MEDICATIONS FOR HER CHOLESTEROL [Concomitant]
     Route: 065
  3. ANTI-HYPERTENSIVE MEDICATION [Concomitant]
     Route: 065
  4. MEDICATIONS FOR HER THYROID PROBLEMS [Concomitant]
     Route: 065

REACTIONS (6)
  - COUGH [None]
  - DYSPNOEA [None]
  - MALAISE [None]
  - NASOPHARYNGITIS [None]
  - INTERVERTEBRAL DISC DISORDER [None]
  - DRUG DOSE OMISSION [None]
